FAERS Safety Report 6764755-3 (Version None)
Quarter: 2010Q2

REPORT INFORMATION
  Report Type: 
  Country: None (occurrence: None)
  Receive Date: 20100610
  Receipt Date: 20100602
  Transmission Date: 20101027
  Serious: Yes (Other)
  Sender: FDA-Public Use
  Company Number: JP-ABBOTT-10P-087-0646309-00

PATIENT
  Sex: Female

DRUGS (6)
  1. KLARICID TABLETS [Suspect]
     Indication: HELICOBACTER INFECTION
     Dosage: FORM STRENGTH 200 MG
     Route: 048
     Dates: start: 20100513, end: 20100517
  2. OMEPRAL [Suspect]
     Indication: HELICOBACTER INFECTION
     Dosage: FORM STRENGTH 10MG
     Route: 048
     Dates: start: 20100513, end: 20100517
  3. OMEPRAL [Suspect]
     Route: 048
     Dates: start: 20100518, end: 20100520
  4. SAWACILLIN [Suspect]
     Indication: HELICOBACTER INFECTION
     Dosage: FORM STRENGTH: 250MG
     Route: 048
     Dates: start: 20100513, end: 20100517
  5. GASTER D [Concomitant]
     Indication: GASTRIC ULCER
     Route: 048
     Dates: start: 20100311, end: 20100512
  6. FERROMIA [Concomitant]
     Indication: IRON DEFICIENCY ANAEMIA
     Dosage: FORM STRENGTH 50MG
     Route: 048
     Dates: start: 20100311

REACTIONS (5)
  - BLOOD GLUCOSE INCREASED [None]
  - BLOOD TRIGLYCERIDES INCREASED [None]
  - DYSPHONIA [None]
  - EYELID OEDEMA [None]
  - FACE OEDEMA [None]
